FAERS Safety Report 7585679-8 (Version None)
Quarter: 2011Q3

REPORT INFORMATION
  Report Type: 
  Country: None (occurrence: None)
  Receive Date: 20110701
  Receipt Date: 20110617
  Transmission Date: 20111222
  Serious: Yes (Other)
  Sender: FDA-Public Use
  Company Number: US-RANBAXY-2011RR-45677

PATIENT
  Sex: Male

DRUGS (8)
  1. LEVAQUIN [Suspect]
     Indication: ORCHITIS
  2. LEVAQUIN [Suspect]
     Dosage: 750 MG, QD
     Route: 042
     Dates: start: 20060828
  3. AVELOX [Suspect]
     Indication: SKIN LESION
     Dosage: UNK MG, UNK
     Route: 048
  4. CIPROFLOXACIN [Suspect]
     Indication: SKIN LESION
     Dosage: 500 MG, UNK
     Route: 048
  5. LEVAQUIN [Suspect]
     Indication: URINARY TRACT INFECTION
     Dosage: UNK MG, UNK
     Route: 048
     Dates: start: 20060601, end: 20081201
  6. LEVAQUIN [Suspect]
     Indication: STAPHYLOCOCCAL INFECTION
     Dosage: 250 MG, UNK
     Route: 048
     Dates: start: 20060601, end: 20081201
  7. LEVAQUIN [Suspect]
     Indication: EPIDIDYMITIS
  8. LEVAQUIN [Suspect]
     Dosage: 250 MG, UNK
     Route: 042

REACTIONS (4)
  - ROTATOR CUFF SYNDROME [None]
  - JOINT INJURY [None]
  - TENDON DISORDER [None]
  - PURPURA [None]
